FAERS Safety Report 8810937 (Version 2)
Quarter: 2012Q4

REPORT INFORMATION
  Report Type: 
  Country: BR (occurrence: BR)
  Receive Date: 20120927
  Receipt Date: 20121031
  Transmission Date: 20130627
  Serious: Yes (Other)
  Sender: FDA-Public Use
  Company Number: BR-JNJFOC-20120911176

PATIENT
  Age: 47 None
  Sex: Female
  Weight: 83 kg

DRUGS (3)
  1. XARELTO [Suspect]
     Indication: EMBOLISM VENOUS
     Route: 048
     Dates: start: 20120829, end: 20120918
  2. XARELTO [Suspect]
     Indication: PULMONARY EMBOLISM
     Route: 048
     Dates: start: 20120829, end: 20120918
  3. PROTON PUMP INHIBITORS [Concomitant]
     Indication: PROPHYLAXIS
     Route: 048
     Dates: start: 2006

REACTIONS (2)
  - Uterine haemorrhage [Recovered/Resolved]
  - Dizziness [Unknown]
